FAERS Safety Report 5707526-9 (Version None)
Quarter: 2008Q2

REPORT INFORMATION
  Report Type: 
  Country: None (occurrence: None)
  Receive Date: 20080416
  Receipt Date: 20080404
  Transmission Date: 20081010
  Serious: Yes (Death, Life-Threatening)
  Sender: FDA-Public Use
  Company Number: AU-PFIZER INC-2008030475

PATIENT
  Sex: Female

DRUGS (4)
  1. ALDACTONE [Suspect]
     Indication: OEDEMA
     Dosage: DAILY DOSE:50MG
     Route: 048
     Dates: start: 20040904, end: 20040917
  2. ORDINE [Suspect]
     Indication: PAIN
     Dosage: FREQ:PRN
     Route: 048
     Dates: start: 20040831, end: 20040925
  3. ALBENDAZOLE [Suspect]
     Indication: ASCITES
     Dosage: DAILY DOSE:2GRAM
     Route: 048
     Dates: start: 20040904, end: 20040917
  4. DURAGESIC-100 [Suspect]
     Indication: MUSCULOSKELETAL PAIN
     Route: 062
     Dates: start: 20040907, end: 20040924

REACTIONS (5)
  - ANAEMIA [None]
  - ASCITES [None]
  - DEATH [None]
  - GENERAL PHYSICAL HEALTH DETERIORATION [None]
  - THROMBOCYTOPENIA [None]
